FAERS Safety Report 19920782 (Version 2)
Quarter: 2022Q1

REPORT INFORMATION
  Report Type: Spontaneous
  Country: IT (occurrence: IT)
  Receive Date: 20211006
  Receipt Date: 20220201
  Transmission Date: 20220423
  Serious: Yes (Other)
  Sender: FDA-Public Use
  Company Number: IT-MINISAL02-787396

PATIENT
  Age: 79 Year
  Sex: Female
  Weight: 57 kg

DRUGS (3)
  1. IMATINIB [Suspect]
     Active Substance: IMATINIB
     Indication: Myeloid leukaemia
     Dosage: 400 MILLIGRAM, DAILY
     Route: 048
     Dates: start: 20210614
  2. IMATINIB [Concomitant]
     Active Substance: IMATINIB
     Indication: Myeloid leukaemia
     Dosage: 300 MILLIGRAM, DAILY
     Route: 048
     Dates: start: 20210429, end: 20210518
  3. GLECAPREVIR\PIBRENTASVIR [Concomitant]
     Active Substance: GLECAPREVIR\PIBRENTASVIR
     Indication: Hepatitis C
     Dosage: UNK
     Route: 065
     Dates: start: 20210326, end: 20210521

REACTIONS (1)
  - Hepatitis [Not Recovered/Not Resolved]

NARRATIVE: CASE EVENT DATE: 20210907
